FAERS Safety Report 18097013 (Version 1)
Quarter: 2020Q3

REPORT INFORMATION
  Report Type: Spontaneous
  Country: IT (occurrence: IT)
  Receive Date: 20200731
  Receipt Date: 20200731
  Transmission Date: 20201103
  Serious: Yes (Death, Life-Threatening, Hospitalization, Other)
  Sender: FDA-Public Use
  Company Number: IT-GP-PHARM S.A.-2087979

PATIENT
  Age: 67 Year
  Sex: Male

DRUGS (3)
  1. HYDROCHLOROTHIAZIDE. [Concomitant]
     Active Substance: HYDROCHLOROTHIAZIDE
  2. LEUPRORELIN DEPOT 22.5 MG (NO BRAND NAME SPECIFIED BY THE REPORTER) [Suspect]
     Active Substance: LEUPROLIDE ACETATE
     Indication: PROSTATE CANCER
     Route: 065
  3. IRBESARTAN. [Concomitant]
     Active Substance: IRBESARTAN

REACTIONS (10)
  - Torsade de pointes [Fatal]
  - Mitral valve incompetence [Unknown]
  - Left atrial enlargement [Unknown]
  - Ventricular fibrillation [Fatal]
  - Seizure [Unknown]
  - Blood potassium decreased [Recovered/Resolved]
  - Left ventricular hypertrophy [Unknown]
  - Sinus bradycardia [Unknown]
  - Cardiac arrest [Fatal]
  - Syncope [Unknown]
